FAERS Safety Report 15022738 (Version 2)
Quarter: 2018Q3

REPORT INFORMATION
  Report Type: Report from Study
  Country: BE (occurrence: BE)
  Receive Date: 20180618
  Receipt Date: 20180720
  Transmission Date: 20181010
  Serious: Yes (Other)
  Sender: FDA-Public Use
  Company Number: PHHY2015BE003985

PATIENT
  Age: 42 Year
  Sex: Female

DRUGS (3)
  1. GILENYA [Suspect]
     Active Substance: FINGOLIMOD HYDROCHLORIDE
     Indication: MULTIPLE SCLEROSIS
     Dosage: UNK UNK, QD
     Route: 048
     Dates: start: 20121211, end: 20130611
  2. LEMTRADA [Suspect]
     Active Substance: ALEMTUZUMAB
     Indication: MULTIPLE SCLEROSIS
     Dosage: UNK
     Route: 065
  3. GILENYA [Suspect]
     Active Substance: FINGOLIMOD HYDROCHLORIDE
     Dosage: UNK UNK, QD
     Route: 048

REACTIONS (10)
  - Fatigue [Recovered/Resolved]
  - Rash [Unknown]
  - Gamma-glutamyltransferase decreased [Unknown]
  - Blood alkaline phosphatase decreased [Unknown]
  - Vaginal discharge [Unknown]
  - Pyrexia [Recovered/Resolved]
  - Herpes zoster [Unknown]
  - Hyperthyroidism [Not Recovered/Not Resolved]
  - Muscle spasms [Unknown]
  - Vaginal infection [Unknown]

NARRATIVE: CASE EVENT DATE: 20130111
